FAERS Safety Report 10022237 (Version 2)
Quarter: 2019Q4

REPORT INFORMATION
  Report Type: Spontaneous
  Country: US (occurrence: US)
  Receive Date: 20140319
  Receipt Date: 20191031
  Transmission Date: 20200122
  Serious: Yes (Other)
  Sender: FDA-Public Use
  Company Number: US-PFIZER INC-2014073439

PATIENT
  Age: 56 Year
  Sex: Female

DRUGS (9)
  1. LOVASTATIN. [Suspect]
     Active Substance: LOVASTATIN
     Dosage: 40 MG, UNK
     Route: 048
     Dates: start: 20060310
  2. LIPITOR [Suspect]
     Active Substance: ATORVASTATIN CALCIUM
     Indication: LOW DENSITY LIPOPROTEIN INCREASED
     Dosage: UNK, AS DIRECTED
     Route: 048
  3. MEVACOR [Suspect]
     Active Substance: LOVASTATIN
     Dosage: 40 MG, UNK
     Route: 048
     Dates: start: 20060603
  4. MEVACOR [Suspect]
     Active Substance: LOVASTATIN
     Dosage: 80 MG, DAILY
     Route: 048
     Dates: start: 20061214
  5. ZETIA [Suspect]
     Active Substance: EZETIMIBE
     Indication: HYPERLIPIDAEMIA
     Dosage: 10 MG, UNK
     Route: 048
     Dates: start: 20080506
  6. SIMVASTATIN. [Suspect]
     Active Substance: SIMVASTATIN
     Indication: HYPERLIPIDAEMIA
     Dosage: 20 MG, (EVERY EVENING)
     Route: 048
     Dates: start: 20100524
  7. LIPITOR [Suspect]
     Active Substance: ATORVASTATIN CALCIUM
     Indication: HYPERLIPIDAEMIA
     Dosage: 10 MG, UNK
     Route: 048
     Dates: start: 20050512, end: 20050929
  8. MEVACOR [Suspect]
     Active Substance: LOVASTATIN
     Indication: HYPERLIPIDAEMIA
     Dosage: 20 MG, UNK
     Route: 048
     Dates: start: 20060113, end: 20090819
  9. LOVASTATIN. [Suspect]
     Active Substance: LOVASTATIN
     Indication: HYPERLIPIDAEMIA
     Dosage: 20 MG, UNK
     Route: 048
     Dates: start: 20060113, end: 20060310

REACTIONS (1)
  - Type 2 diabetes mellitus [Unknown]

NARRATIVE: CASE EVENT DATE: 20100524
